FAERS Safety Report 4321976-7 (Version None)
Quarter: 2004Q1

REPORT INFORMATION
  Report Type: 
  Country: None (occurrence: None)
  Receive Date: 20040319
  Receipt Date: 20040115
  Transmission Date: 20041129
  Serious: No
  Sender: FDA-Public Use
  Company Number: 200400428

PATIENT
  Age: 57 Year
  Sex: Male

DRUGS (2)
  1. LUMIGAN [Suspect]
     Indication: INTRAOCULAR PRESSURE INCREASED
     Dates: start: 20030715, end: 20031114
  2. QVAR 40 [Concomitant]

REACTIONS (1)
  - DIZZINESS [None]
